FAERS Safety Report 5659714-8 (Version None)
Quarter: 2008Q1

REPORT INFORMATION
  Report Type: 
  Country: None (occurrence: None)
  Receive Date: 20080311
  Receipt Date: 20070626
  Transmission Date: 20080703
  Serious: No
  Sender: FDA-Public Use
  Company Number: US-BAYER-200712037BCC

PATIENT
  Age: 65 Year
  Sex: Male
  Weight: 88 kg

DRUGS (3)
  1. ALEVE [Suspect]
     Indication: PAIN IN EXTREMITY
     Dosage: UNIT DOSE: 220 MG
     Route: 048
     Dates: start: 20070623
  2. ALEVE [Suspect]
     Dosage: UNIT DOSE: 220 MG
     Route: 048
     Dates: start: 20070624
  3. TYLENOL (CAPLET) [Suspect]
     Indication: DRUG USE FOR UNKNOWN INDICATION
     Dates: start: 20070623

REACTIONS (2)
  - GAIT DISTURBANCE [None]
  - OEDEMA PERIPHERAL [None]
